FAERS Safety Report 5241414-X (Version None)
Quarter: 2007Q1

REPORT INFORMATION
  Report Type: 
  Country: None (occurrence: None)
  Receive Date: 20070220
  Receipt Date: 20070212
  Transmission Date: 20070707
  Serious: Yes (Other)
  Sender: FDA-Public Use
  Company Number: 2007SE00833

PATIENT
  Age: 10945 Day
  Sex: Female
  Weight: 57 kg

DRUGS (5)
  1. CRESTOR [Suspect]
     Indication: HYPERLIPIDAEMIA
     Route: 048
     Dates: start: 20061004
  2. CRESTOR [Suspect]
     Route: 048
     Dates: end: 20070211
  3. SLOW MAG [Concomitant]
  4. PHARMATON FIZZY MULTIVITAMIN [Concomitant]
  5. TAVANIC [Concomitant]
     Indication: URINARY TRACT INFECTION

REACTIONS (6)
  - ANXIETY [None]
  - DIZZINESS [None]
  - MYALGIA [None]
  - NAUSEA [None]
  - PALPITATIONS [None]
  - WEIGHT DECREASED [None]
